FAERS Safety Report 8667327 (Version 5)
Quarter: 2013Q1

REPORT INFORMATION
  Report Type: Spontaneous
  Country: CA (occurrence: None)
  Receive Date: 20120629
  Receipt Date: 20120822
  Transmission Date: 20140127
  Serious: Yes (Other)
  Sender: FDA-Public Use
  Company Number: 2012-2775

PATIENT
  Age: 45 Year
  Sex: Male

DRUGS (7)
  1. LANREOTIDE ACETATE [Suspect]
     Indication: PRODUCT USED FOR UNKNOWN INDICATION
     Dosage: 120 MG (120 MG, 1 IN 28 D), SUBCUTANEOUS
     Dates: start: 20090604
  2. SANDOZ CANDESARTAN (CANDESARTAN) [Concomitant]
  3. CORTISONE ACETATE [Concomitant]
  4. APO-PANTOPRAZOLE (PANTOPRAZOLE) [Concomitant]
  5. RATIO DOMPERIDONE (DOMPERIDONE) [Concomitant]
  6. SYNTHROID [Concomitant]
  7. ELAVIL [Concomitant]

REACTIONS (2)
  - Osteoarthritis [None]
  - Osteonecrosis [None]
